FAERS Safety Report 9677778 (Version 2)
Quarter: 2013Q4

REPORT INFORMATION
  Report Type: Spontaneous
  Country: US (occurrence: US)
  Receive Date: 20131108
  Receipt Date: 20131220
  Transmission Date: 20140711
  Serious: No
  Sender: FDA-Public Use
  Company Number: US-PFIZER INC-2013316708

PATIENT
  Age: 68 Year
  Sex: Female
  Weight: 71.2 kg

DRUGS (3)
  1. PREMARIN [Suspect]
     Indication: BLADDER PROLAPSE
     Dosage: 1 MG, 2X/WEEK (ON MONDAY AND FRIDAY)
     Route: 067
     Dates: start: 20131028
  2. LIPITOR [Concomitant]
     Indication: BLOOD CHOLESTEROL INCREASED
     Dosage: 40 MG, 1X/DAY
     Route: 048
  3. METOPROLOL [Concomitant]
     Indication: CARDIAC DISORDER
     Dosage: 50 MG, 2X/DAY

REACTIONS (2)
  - Vulvovaginal pruritus [Not Recovered/Not Resolved]
  - Intentional drug misuse [Unknown]
